FAERS Safety Report 17997694 (Version 2)
Quarter: 2020Q3

REPORT INFORMATION
  Report Type: Spontaneous
  Country: DE (occurrence: DE)
  Receive Date: 20200708
  Receipt Date: 20200820
  Transmission Date: 20201103
  Serious: Yes (Death)
  Sender: FDA-Public Use
  Company Number: NVSC2020DE192958

PATIENT
  Sex: Female
  Weight: 62 kg

DRUGS (1)
  1. KYMRIAH [Suspect]
     Active Substance: TISAGENLECLEUCEL
     Indication: DIFFUSE LARGE B-CELL LYMPHOMA
     Dosage: UNK
     Route: 042
     Dates: start: 20190909, end: 20190909

REACTIONS (5)
  - Cytokine release syndrome [Fatal]
  - Hypotension [Fatal]
  - Pyrexia [Fatal]
  - Multiple organ dysfunction syndrome [Fatal]
  - Hypoxia [Fatal]

NARRATIVE: CASE EVENT DATE: 20190917
